FAERS Safety Report 12555957 (Version 5)
Quarter: 2016Q3

REPORT INFORMATION
  Report Type: Report from Study
  Country: CA (occurrence: CA)
  Receive Date: 20160714
  Receipt Date: 20160729
  Transmission Date: 20161109
  Serious: Yes (Hospitalization)
  Sender: FDA-Public Use
  Company Number: CA-BEH-2016070938

PATIENT
  Age: 82 Year
  Sex: Female

DRUGS (5)
  1. HAEMATE P [Suspect]
     Active Substance: ANTIHEMOPHILIC FACTOR HUMAN
     Indication: VON WILLEBRAND^S DISEASE
     Dosage: 500 IU, FOUR TIMES A WEEK
     Route: 042
     Dates: start: 20160421
  2. ANTIBIOTICS [Concomitant]
     Active Substance: UNSPECIFIED INGREDIENT
     Route: 065
  3. HAEMATE P [Suspect]
     Active Substance: ANTIHEMOPHILIC FACTOR HUMAN
     Dosage: 500 IU, TOT
     Route: 042
     Dates: start: 20160712, end: 20160712
  4. HAEMATE P [Suspect]
     Active Substance: ANTIHEMOPHILIC FACTOR HUMAN
     Dosage: 500 IU, TOT
     Route: 042
     Dates: start: 20160705, end: 20160705
  5. HAEMATE P [Suspect]
     Active Substance: ANTIHEMOPHILIC FACTOR HUMAN
     Dosage: 500 IU, TOT
     Route: 042
     Dates: start: 20160726, end: 20160726

REACTIONS (2)
  - Body temperature increased [Unknown]
  - Hospitalisation [Unknown]

NARRATIVE: CASE EVENT DATE: 20160705
